FAERS Safety Report 17564863 (Version 1)
Quarter: 2020Q1

REPORT INFORMATION
  Report Type: Spontaneous
  Country: US (occurrence: US)
  Receive Date: 20200320
  Receipt Date: 20200320
  Transmission Date: 20200409
  Serious: No
  Sender: FDA-Public Use
  Company Number: US-GW PHARMA-202003USGW01050

PATIENT

DRUGS (1)
  1. EPIDIOLEX [Suspect]
     Active Substance: CANNABIDIOL
     Indication: EPILEPSY
     Dosage: 700 MILLIGRAM, QD (300 MG QAM AND 400MG QPM)
     Route: 048
     Dates: start: 20190830

REACTIONS (4)
  - Insurance issue [Not Recovered/Not Resolved]
  - Product dose omission [Not Recovered/Not Resolved]
  - Product dose omission [Recovered/Resolved]
  - Seizure [Unknown]

NARRATIVE: CASE EVENT DATE: 202002
